FAERS Safety Report 14732107 (Version 1)
Quarter: 2018Q2

REPORT INFORMATION
  Report Type: Spontaneous
  Country: GB (occurrence: GB)
  Receive Date: 20180408
  Receipt Date: 20180408
  Transmission Date: 20180711
  Serious: Yes (Congenital Anomaly, Other)
  Sender: FDA-Public Use
  Company Number: GB-TEVA-2018-GB-879164

PATIENT
  Age: 33 Year
  Sex: Female

DRUGS (2)
  1. MIRTAZAPINE. [Suspect]
     Active Substance: MIRTAZAPINE
     Indication: MIGRAINE
     Dosage: UNK
     Route: 065
     Dates: start: 2015
  2. VENLAFAXINE [Suspect]
     Active Substance: VENLAFAXINE HYDROCHLORIDE
     Indication: AFFECTIVE DISORDER
     Route: 065

REACTIONS (40)
  - Cerebral disorder [Unknown]
  - Central nervous system lesion [Unknown]
  - Photosensitivity reaction [Unknown]
  - Heart rate increased [Unknown]
  - Loss of personal independence in daily activities [Unknown]
  - Condition aggravated [Unknown]
  - Somnolence [Unknown]
  - Asthenopia [Unknown]
  - Night sweats [Unknown]
  - Gait inability [Unknown]
  - Hyperacusis [Unknown]
  - Withdrawal syndrome [Unknown]
  - Dyspnoea [Unknown]
  - Panic attack [Unknown]
  - Confusional state [Unknown]
  - Nervousness [Unknown]
  - Disability [Unknown]
  - Tension headache [Unknown]
  - Speech disorder [Unknown]
  - Hallucination [Unknown]
  - Malaise [Unknown]
  - Vibratory sense increased [Unknown]
  - Dizziness [Unknown]
  - Catatonia [Unknown]
  - Seizure [Unknown]
  - Hyperexplexia [Unknown]
  - Anger [Unknown]
  - Agitation [Unknown]
  - Drug ineffective [Unknown]
  - Mental status changes [Unknown]
  - Fatigue [Unknown]
  - Feeling abnormal [Unknown]
  - Intraocular pressure decreased [Unknown]
  - Hypersomnia [Unknown]
  - Thinking abnormal [Unknown]
  - Sleep terror [Unknown]
  - Fear [Unknown]
  - Tremor [Unknown]
  - Affective disorder [Unknown]
  - Indifference [Unknown]
